FAERS Safety Report 19549738 (Version 1)
Quarter: 2021Q3

REPORT INFORMATION
  Report Type: Spontaneous
  Country: FR (occurrence: FR)
  Receive Date: 20210714
  Receipt Date: 20210714
  Transmission Date: 20211014
  Serious: Yes (Other)
  Sender: FDA-Public Use
  Company Number: FR-ACCORD-231338

PATIENT
  Age: 66 Year
  Sex: Female
  Weight: 101 kg

DRUGS (1)
  1. ACCORD (DOCETAXEL) [Suspect]
     Active Substance: DOCETAXEL
     Indication: HER2 NEGATIVE BREAST CANCER
     Dosage: D1
     Route: 042
     Dates: start: 20210427, end: 20210427

REACTIONS (5)
  - Weight decreased [Recovered/Resolved]
  - Pruritus [Recovered/Resolved]
  - Angioedema [Recovered/Resolved]
  - Asthenia [Recovered/Resolved]
  - Localised oedema [Recovered/Resolved]

NARRATIVE: CASE EVENT DATE: 20210430
